FAERS Safety Report 4586347-7 (Version None)
Quarter: 2005Q1

REPORT INFORMATION
  Report Type: 
  Country: None (occurrence: None)
  Receive Date: 20050125
  Receipt Date: 20040827
  Transmission Date: 20050727
  Serious: No
  Sender: FDA-Public Use
  Company Number: USA040876652

PATIENT
  Age: 79 Year
  Sex: Female
  Weight: 68 kg

DRUGS (4)
  1. FORTEO [Suspect]
     Indication: BONE DISORDER
     Dosage: 20 UG/1 DAY
     Dates: start: 20040501
  2. FORTEO [Suspect]
     Indication: OSTEOPOROSIS
     Dosage: 20 UG/1 DAY
     Dates: start: 20040501
  3. CALCIUM WITH VITAMIN D [Concomitant]
  4. RISEDRONATE SODIUM [Concomitant]

REACTIONS (6)
  - ASTHENIA [None]
  - BONE PAIN [None]
  - DIZZINESS [None]
  - FEELING ABNORMAL [None]
  - HEART RATE INCREASED [None]
  - PAIN IN EXTREMITY [None]
